FAERS Safety Report 5259592-5 (Version None)
Quarter: 2007Q1

REPORT INFORMATION
  Report Type: 
  Country: None (occurrence: None)
  Receive Date: 20070307
  Receipt Date: 20070307
  Transmission Date: 20070707
  Serious: Yes (Other)
  Sender: FDA-Public Use
  Company Number: None

PATIENT
  Age: 49 Year
  Sex: Female

DRUGS (2)
  1. ULTRAM [Suspect]
     Indication: FIBROMYALGIA
     Dosage: 50MG 3 QID PO
     Route: 048
     Dates: start: 20030601, end: 20030901
  2. ULTRAM [Suspect]
     Indication: SYNOVITIS
     Dosage: 50MG 3 QID PO
     Route: 048
     Dates: start: 20030601, end: 20030901

REACTIONS (1)
  - RASH [None]
